FAERS Safety Report 6652174-X (Version None)
Quarter: 2010Q1

REPORT INFORMATION
  Report Type: 
  Country: None (occurrence: None)
  Receive Date: 20100325
  Receipt Date: 20100315
  Transmission Date: 20100710
  Serious: Yes (Hospitalization)
  Sender: FDA-Public Use
  Company Number: BE-WYE-H14149110

PATIENT
  Sex: Female
  Weight: 90 kg

DRUGS (8)
  1. BOSUTINIB [Suspect]
     Indication: BREAST CANCER
     Route: 048
     Dates: start: 20100111, end: 20100310
  2. ALTIZIDE/SPIRONOLACTONE [Concomitant]
     Indication: HYPERTENSION
     Dosage: DOSE NOT PROVIED
     Route: 048
  3. DEXPANTHENOL [Concomitant]
     Indication: REFLUX OESOPHAGITIS
     Dosage: NOT PROVIDED
     Route: 065
     Dates: start: 20080101
  4. LYSOMUCIL [Concomitant]
     Indication: PROPHYLAXIS
     Dosage: DOSE NOT PROVIDED
     Route: 065
     Dates: start: 19950101
  5. ZALDIAR [Concomitant]
     Indication: PAIN
     Dosage: NOT PROVIDED
     Route: 065
     Dates: start: 20090101
  6. DAFALGAN [Concomitant]
     Indication: PAIN
     Dosage: NOT PROVIDED
     Route: 065
     Dates: start: 20090101
  7. EXEMESTANE [Suspect]
     Indication: BREAST CANCER
     Route: 048
     Dates: start: 20100111
  8. BISOPROLOL FUMARATE [Concomitant]
     Dosage: DOSE NOT PROVIDED
     Route: 048
     Dates: start: 20070101

REACTIONS (1)
  - DIABETES MELLITUS [None]
